FAERS Safety Report 20302469 (Version 2)
Quarter: 2022Q1

REPORT INFORMATION
  Report Type: Spontaneous
  Country: NL (occurrence: NL)
  Receive Date: 20220106
  Receipt Date: 20220302
  Transmission Date: 20220423
  Serious: Yes (Death, Other)
  Sender: FDA-Public Use
  Company Number: NL-ALEMBIC-2021SCAL000580

PATIENT

DRUGS (8)
  1. OXAZEPAM [Interacting]
     Active Substance: OXAZEPAM
     Indication: Stress
     Dosage: UNK
     Route: 065
  2. OXAZEPAM [Interacting]
     Active Substance: OXAZEPAM
     Indication: Sleep disorder
     Dosage: 1 MILLIGRAM
     Route: 065
  3. TEMAZEPAM [Interacting]
     Active Substance: TEMAZEPAM
     Indication: Sleep disorder
     Dosage: 1 MILLIGRAM
     Route: 065
  4. TEMAZEPAM [Interacting]
     Active Substance: TEMAZEPAM
     Indication: Stress
     Dosage: 10 MILLIGRAM, ONCE A DAY
     Route: 065
  5. VENLAFAXINE [Interacting]
     Active Substance: VENLAFAXINE HYDROCHLORIDE
     Indication: Sleep disorder
     Dosage: 1 MILLIGRAM
     Route: 065
  6. VENLAFAXINE [Interacting]
     Active Substance: VENLAFAXINE HYDROCHLORIDE
     Indication: Stress
     Dosage: 37.5 MILLIGRAM, ONCE A DAY
     Route: 065
  7. ZOPICLONE [Interacting]
     Active Substance: ZOPICLONE
     Indication: Sleep disorder
     Dosage: 1 MILLIGRAM
     Route: 065
  8. ZOPICLONE [Interacting]
     Active Substance: ZOPICLONE
     Indication: Stress
     Dosage: UNK MILLIGRAM
     Route: 065

REACTIONS (5)
  - Completed suicide [Fatal]
  - Drug withdrawal syndrome [Fatal]
  - Product dose omission issue [Fatal]
  - Drug interaction [Fatal]
  - Organic brain syndrome [Fatal]
